FAERS Safety Report 5045768-9 (Version None)
Quarter: 2006Q2

REPORT INFORMATION
  Report Type: 
  Country: None (occurrence: None)
  Receive Date: 20060601
  Receipt Date: 20060425
  Transmission Date: 20061013
  Serious: No
  Sender: FDA-Public Use
  Company Number: 2006-BP-04692BP

PATIENT
  Age: 63 Year
  Sex: Female

DRUGS (5)
  1. SPIRIVA [Suspect]
     Indication: CHRONIC OBSTRUCTIVE PULMONARY DISEASE
     Dosage: 18 MCG (18 MCG), IH
     Route: 055
     Dates: start: 20060404
  2. SPIRIVA [Suspect]
  3. ALBUTEROL SPIROS [Concomitant]
  4. IPRATROPIUM BROMIDE [Concomitant]
  5. ADVAIR (SERETIDE /01420901/) [Concomitant]

REACTIONS (4)
  - DYSPNOEA [None]
  - HYPERHIDROSIS [None]
  - MICTURITION URGENCY [None]
  - NERVOUSNESS [None]
